FAERS Safety Report 8561426 (Version 2)
Quarter: 2012Q4

REPORT INFORMATION
  Report Type: 
  Country: DE (occurrence: DE)
  Receive Date: 20120514
  Receipt Date: 20121017
  Transmission Date: 20130627
  Serious: Yes (Death, Hospitalization, Disabling)
  Sender: FDA-Public Use
  Company Number: DE-ELI_LILLY_AND_COMPANY-DE201205000913

PATIENT
  Sex: Male

DRUGS (2)
  1. FORSTEO [Suspect]
     Indication: OSTEOPOROSIS
     Dosage: UNK UNK, qd
     Route: 058
     Dates: start: 20110929, end: 20120419
  2. CHEMOTHERAPEUTICS [Concomitant]
     Indication: PROSTATE CANCER
     Dosage: UNK

REACTIONS (4)
  - Pulmonary oedema [Fatal]
  - Cardiac failure [Fatal]
  - Cerebrovascular accident [Not Recovered/Not Resolved]
  - Hemiplegia [Unknown]
